FAERS Safety Report 8810539 (Version 3)
Quarter: 2013Q3

REPORT INFORMATION
  Report Type: Spontaneous
  Country: US (occurrence: US)
  Receive Date: 20120927
  Receipt Date: 20130717
  Transmission Date: 20140515
  Serious: No
  Sender: FDA-Public Use
  Company Number: US-BIOGENIDEC-2012BI039328

PATIENT
  Age: 54 Year
  Sex: Female

DRUGS (3)
  1. TYSABRI [Suspect]
     Indication: MULTIPLE SCLEROSIS
     Route: 042
     Dates: start: 20061020, end: 20090410
  2. TYSABRI [Suspect]
     Indication: MULTIPLE SCLEROSIS
     Route: 042
     Dates: start: 20100630, end: 20101005
  3. TYSABRI [Suspect]
     Indication: MULTIPLE SCLEROSIS
     Route: 042
     Dates: start: 20120608

REACTIONS (8)
  - Muscle spasms [Not Recovered/Not Resolved]
  - Diplopia [Recovered/Resolved]
  - Feeling cold [Not Recovered/Not Resolved]
  - Secondary progressive multiple sclerosis [Unknown]
  - Balance disorder [Recovered/Resolved]
  - Musculoskeletal disorder [Recovered/Resolved]
  - Mobility decreased [Recovered/Resolved]
  - Multiple sclerosis [Recovered/Resolved]
